FAERS Safety Report 18753677 (Version 1)
Quarter: 2021Q1

REPORT INFORMATION
  Report Type: Spontaneous
  Country: US (occurrence: US)
  Receive Date: 20210118
  Receipt Date: 20210118
  Transmission Date: 20210419
  Serious: No
  Sender: FDA-Public Use
  Company Number: US-009507513-2101USA005102

PATIENT
  Age: 44 Year
  Sex: Female

DRUGS (1)
  1. NEXPLANON [Suspect]
     Active Substance: ETONOGESTREL
     Indication: MENOMETRORRHAGIA
     Dosage: 68 MILLIGRAM, ONCE EVERY 3 YEARS
     Route: 059
     Dates: start: 202002

REACTIONS (2)
  - Vaginal haemorrhage [Unknown]
  - Product use in unapproved indication [Unknown]

NARRATIVE: CASE EVENT DATE: 202002
